FAERS Safety Report 5235260-0 (Version None)
Quarter: 2007Q1

REPORT INFORMATION
  Report Type: 
  Country: None (occurrence: None)
  Receive Date: 20070207
  Receipt Date: 20070207
  Transmission Date: 20070707
  Serious: Yes (Disabling)
  Sender: FDA-Public Use
  Company Number: None

PATIENT
  Age: 42 Year
  Sex: Male
  Weight: 69 kg

DRUGS (17)
  1. VANCOMYCIN [Suspect]
     Indication: EXTRADURAL ABSCESS
     Dosage: 1.25 GM Q8 HOURS IV
     Route: 042
     Dates: start: 20070129, end: 20070130
  2. VANCOMYCIN [Suspect]
     Indication: STAPHYLOCOCCAL INFECTION
     Dosage: 1.25 GM Q8 HOURS IV
     Route: 042
     Dates: start: 20070129, end: 20070130
  3. VANCOMYCIN [Suspect]
     Indication: EXTRADURAL ABSCESS
     Dosage: 1 GM THEN 750 MG Q8 HOURS IV
     Route: 042
     Dates: start: 20070130, end: 20070203
  4. VANCOMYCIN [Suspect]
     Indication: STAPHYLOCOCCAL INFECTION
     Dosage: 1 GM THEN 750 MG Q8 HOURS IV
     Route: 042
     Dates: start: 20070130, end: 20070203
  5. AMITRIPTYLINE HCL [Concomitant]
  6. DIAZEPAM [Concomitant]
  7. POLYSACCHARIDE IRON COMPLEX [Concomitant]
  8. OXYCONTIN [Concomitant]
  9. PROTONIX [Concomitant]
  10. RIFAMPIN [Concomitant]
  11. WARFARIN SODIUM [Concomitant]
  12. BACLOFEN [Concomitant]
  13. CLONIDINE [Concomitant]
  14. LOVENOX [Concomitant]
  15. GABAPENTIN [Concomitant]
  16. METHOCARBAMOL [Concomitant]
  17. PREGABALIN [Concomitant]

REACTIONS (4)
  - BLOOD CULTURE POSITIVE [None]
  - RASH ERYTHEMATOUS [None]
  - RASH PRURITIC [None]
  - WHITE BLOOD CELL COUNT DECREASED [None]
